FAERS Safety Report 11798434 (Version 1)
Quarter: 2015Q4

REPORT INFORMATION
  Report Type: Spontaneous
  Country: CA (occurrence: CA)
  Receive Date: 20151203
  Receipt Date: 20151203
  Transmission Date: 20160305
  Serious: Yes (Other)
  Sender: FDA-Public Use
  Company Number: CA-TEVA-613488ACC

PATIENT
  Age: 60 Year
  Sex: Male
  Weight: 87 kg

DRUGS (1)
  1. FINASTERIDE. [Suspect]
     Active Substance: FINASTERIDE
     Indication: BENIGN PROSTATIC HYPERPLASIA
     Dosage: 5  DAILY;
     Route: 048

REACTIONS (2)
  - Breast cancer [Unknown]
  - Metastasis [Unknown]
